FAERS Safety Report 22521672 (Version 1)
Quarter: 2023Q2

REPORT INFORMATION
  Report Type: Spontaneous
  Country: NL (occurrence: NL)
  Receive Date: 20230605
  Receipt Date: 20230605
  Transmission Date: 20230721
  Serious: Yes (Other)
  Sender: FDA-Public Use
  Company Number: None

PATIENT
  Sex: Female
  Weight: 75 kg

DRUGS (1)
  1. PREDNISOLONE [Suspect]
     Active Substance: PREDNISOLONE
     Indication: Polymyalgia rheumatica
     Dosage: FROM 15 MG TO TAPERING DOWN TO 0 MG, BRAND NAME NOT SPECIFIED
     Route: 065
     Dates: start: 20220818

REACTIONS (3)
  - Visual field defect [Unknown]
  - Glaucoma [Unknown]
  - Optic nerve injury [Unknown]
